FAERS Safety Report 7170198-3 (Version None)
Quarter: 2010Q4

REPORT INFORMATION
  Report Type: 
  Country: None (occurrence: None)
  Receive Date: 20101217
  Receipt Date: 20101208
  Transmission Date: 20110411
  Serious: Yes (Other)
  Sender: FDA-Public Use
  Company Number: CA-JNJFOC-20100905626

PATIENT
  Sex: Female
  Weight: 52.3 kg

DRUGS (4)
  1. REMICADE [Suspect]
     Indication: CROHN'S DISEASE
     Dosage: TOTAL OF 43 INFUSIONS
     Route: 042
  2. ACTONEL [Concomitant]
  3. PANTOLOC [Concomitant]
  4. VITAMIN B-12 [Concomitant]
     Route: 050

REACTIONS (3)
  - ARTHRALGIA [None]
  - OVARIAN CYST [None]
  - VAGINAL CYST [None]
